FAERS Safety Report 8306953-3 (Version None)
Quarter: 2012Q2

REPORT INFORMATION
  Report Type: 
  Country: None (occurrence: None)
  Receive Date: 20120424
  Receipt Date: 20120413
  Transmission Date: 20120825
  Serious: Yes (Other)
  Sender: FDA-Public Use
  Company Number: SE-JNJFOC-20120407151

PATIENT
  Sex: Male

DRUGS (2)
  1. REMICADE [Suspect]
     Indication: PRODUCT USED FOR UNKNOWN INDICATION
     Route: 042
     Dates: start: 20110801
  2. OTHER THERAPEUTIC PRODUCT [Concomitant]
     Route: 065

REACTIONS (2)
  - PULMONARY EMBOLISM [None]
  - PNEUMONIA [None]
